FAERS Safety Report 23098320 (Version 1)
Quarter: 2023Q4

REPORT INFORMATION
  Report Type: Spontaneous
  Country: US (occurrence: US)
  Receive Date: 20231023
  Receipt Date: 20231023
  Transmission Date: 20240109
  Serious: Yes (Other)
  Sender: FDA-Public Use
  Company Number: US-ABBVIE-5456369

PATIENT
  Sex: Male

DRUGS (1)
  1. REFRESH P.M. [Suspect]
     Active Substance: MINERAL OIL\PETROLATUM
     Indication: Product used for unknown indication
     Route: 065

REACTIONS (4)
  - Keratomileusis [Unknown]
  - Eye discharge [Unknown]
  - Dry eye [Unknown]
  - Therapeutic product effect incomplete [Unknown]
